FAERS Safety Report 8474100-3 (Version None)
Quarter: 2012Q2

REPORT INFORMATION
  Report Type: 
  Country: None (occurrence: None)
  Receive Date: 20120628
  Receipt Date: 20111020
  Transmission Date: 20120825
  Serious: Yes (Other)
  Sender: FDA-Public Use
  Company Number: US-MYLANLABS-2011S1009500

PATIENT
  Age: 49 Year
  Sex: Male

DRUGS (2)
  1. REMERON [Concomitant]
  2. CLOZAPINE [Suspect]
     Route: 048
     Dates: end: 20110501

REACTIONS (1)
  - GRANULOCYTOPENIA [None]
